FAERS Safety Report 16686975 (Version 1)
Quarter: 2019Q3

REPORT INFORMATION
  Report Type: Spontaneous
  Country: US (occurrence: US)
  Receive Date: 20190809
  Receipt Date: 20190809
  Transmission Date: 20191004
  Serious: Yes (Other)
  Sender: FDA-Public Use
  Company Number: US-ACCORD-150769

PATIENT
  Age: 28 Year
  Sex: Female

DRUGS (3)
  1. GEMCITABINE/GEMCITABINE HYDROCHLORIDE [Suspect]
     Active Substance: GEMCITABINE\GEMCITABINE HYDROCHLORIDE
     Indication: METASTASES TO LYMPH NODES
  2. CISPLATIN. [Suspect]
     Active Substance: CISPLATIN
     Indication: UNDIFFERENTIATED NASOPHARYNGEAL CARCINOMA
  3. TENOFOVIR [Concomitant]
     Active Substance: TENOFOVIR
     Indication: CHRONIC HEPATITIS B

REACTIONS (4)
  - Nausea [Unknown]
  - Vomiting [Unknown]
  - Drug tolerance decreased [Unknown]
  - Thrombocytopenia [Unknown]
